FAERS Safety Report 18818582 (Version 2)
Quarter: 2021Q1

REPORT INFORMATION
  Report Type: Spontaneous
  Country: US (occurrence: US)
  Receive Date: 20210202
  Receipt Date: 20210323
  Transmission Date: 20210419
  Serious: Yes (Other)
  Sender: FDA-Public Use
  Company Number: US-LUPIN PHARMACEUTICALS INC.-2021-00739

PATIENT
  Age: 24 Year
  Sex: Female

DRUGS (3)
  1. ALBUTEROL SULFATE INHALATION AEROSOL, 90 MCG/ACTUATION [Suspect]
     Active Substance: ALBUTEROL SULFATE
     Dosage: UNK
     Dates: start: 202101
  2. ALBUTEROL SULFATE INHALATION AEROSOL, 90 MCG/ACTUATION [Suspect]
     Active Substance: ALBUTEROL SULFATE
     Dosage: UNK
     Dates: start: 202012
  3. ALBUTEROL SULFATE INHALATION AEROSOL, 90 MCG/ACTUATION [Suspect]
     Active Substance: ALBUTEROL SULFATE
     Indication: BRONCHOSPASM
     Dosage: UNK
     Dates: start: 202011

REACTIONS (7)
  - Asthma [Unknown]
  - Extra dose administered [Unknown]
  - Dyspnoea [Unknown]
  - Device occlusion [Unknown]
  - Fear of death [Unknown]
  - Drug ineffective [None]
  - Device delivery system issue [Unknown]

NARRATIVE: CASE EVENT DATE: 202101
